FAERS Safety Report 10509359 (Version 1)
Quarter: 2014Q4

REPORT INFORMATION
  Report Type: Spontaneous
  Country: US (occurrence: US)
  Receive Date: 20141009
  Receipt Date: 20141009
  Transmission Date: 20150528
  Serious: No
  Sender: FDA-Public Use
  Company Number: US-009507513-1410USA000957

PATIENT

DRUGS (1)
  1. JANUMET [Suspect]
     Active Substance: METFORMIN HYDROCHLORIDE\SITAGLIPTIN PHOSPHATE
     Dosage: JANUMET ADMINISTERED VIA PERCUTANEOUS ENDOSCOPIC GASTROSTOMY (PEG) TUBE.
     Route: 050

REACTIONS (3)
  - Gastrostomy [Unknown]
  - Wrong technique in drug usage process [Unknown]
  - Incorrect route of drug administration [Unknown]
